FAERS Safety Report 6378584-6 (Version None)
Quarter: 2009Q3

REPORT INFORMATION
  Report Type: 
  Country: None (occurrence: None)
  Receive Date: 20090928
  Receipt Date: 20090916
  Transmission Date: 20100115
  Serious: Yes (Other)
  Sender: FDA-Public Use
  Company Number: NZ-BAYER-200933090GPV

PATIENT
  Age: 33 Year
  Sex: Female

DRUGS (3)
  1. YAZ [Suspect]
     Indication: DRUG USE FOR UNKNOWN INDICATION
     Route: 048
     Dates: start: 20090906, end: 20090914
  2. LOXAMINE [Concomitant]
     Indication: ANXIETY
  3. PAROXETINE HCL [Concomitant]
     Indication: ANXIETY

REACTIONS (4)
  - ANXIETY [None]
  - DEPRESSION [None]
  - HEADACHE [None]
  - NAUSEA [None]
